FAERS Safety Report 23859556 (Version 1)
Quarter: 2024Q2

REPORT INFORMATION
  Report Type: Other
  Country: FR (occurrence: FR)
  Receive Date: 20240515
  Receipt Date: 20240515
  Transmission Date: 20240716
  Serious: Yes (Other)
  Sender: FDA-Public Use
  Company Number: None

PATIENT
  Age: 42 Year
  Sex: Female

DRUGS (2)
  1. VISIPAQUE [Interacting]
     Active Substance: IODIXANOL
     Indication: Therapeutic embolisation
     Dosage: 60 ML, TOTAL
     Route: 042
     Dates: start: 20230728, end: 20230728
  2. LIPIODOL [Interacting]
     Active Substance: ETHIODIZED OIL
     Indication: Therapeutic embolisation
     Dosage: 4 ML, TOTAL
     Route: 042
     Dates: start: 20230728, end: 20230728

REACTIONS (2)
  - Drug interaction [Recovered/Resolved]
  - Hyperthyroidism [Recovered/Resolved]

NARRATIVE: CASE EVENT DATE: 20231017
